FAERS Safety Report 17803446 (Version 1)
Quarter: 2020Q2

REPORT INFORMATION
  Report Type: Spontaneous
  Country: RU (occurrence: RU)
  Receive Date: 20200519
  Receipt Date: 20200519
  Transmission Date: 20200714
  Serious: Yes (Hospitalization, Other)
  Sender: FDA-Public Use
  Company Number: RU-PFIZER INC-2020195197

PATIENT
  Sex: Female

DRUGS (2)
  1. FULVESTRANT. [Concomitant]
     Active Substance: FULVESTRANT
  2. PALBOCICLIB [Suspect]
     Active Substance: PALBOCICLIB

REACTIONS (5)
  - Internal haemorrhage [Unknown]
  - Faeces discoloured [Unknown]
  - Thrombocytopenia [Unknown]
  - Leukopenia [Unknown]
  - Haemorrhage [Unknown]
